FAERS Safety Report 10450804 (Version 6)
Quarter: 2014Q4

REPORT INFORMATION
  Report Type: Report from Study
  Country: US (occurrence: US)
  Receive Date: 20140912
  Receipt Date: 20141103
  Transmission Date: 20150528
  Serious: Yes (Hospitalization, Other)
  Sender: FDA-Public Use
  Company Number: US-009507513-1409USA000830

PATIENT
  Age: 61 Year
  Sex: Male

DRUGS (18)
  1. CLOBETASOL PROPIONATE. [Concomitant]
     Active Substance: CLOBETASOL PROPIONATE
     Dosage: 1 APPLICATION, BID
     Route: 061
  2. AMBIEN [Concomitant]
     Active Substance: ZOLPIDEM TARTRATE
     Dosage: 12.5 MG, HS
     Route: 048
  3. GUAIFENESIN. [Concomitant]
     Active Substance: GUAIFENESIN
     Indication: COUGH
     Dosage: 5 ML (100-10 MG/5), PRN
     Route: 048
  4. CEPHALEXIN. [Concomitant]
     Active Substance: CEPHALEXIN
     Dosage: 500 MG, BID
     Route: 048
  5. COMPAZINE [Concomitant]
     Active Substance: PROCHLORPERAZINE MALEATE
     Indication: NAUSEA
     Dosage: 10 MG, Q6H, PRN
     Route: 048
  6. METHADONE HYDROCHLORIDE. [Concomitant]
     Active Substance: METHADONE HYDROCHLORIDE
     Dosage: 2.5 MG, Q8H
     Route: 048
  7. ATORVASTATIN [Concomitant]
     Active Substance: ATORVASTATIN
     Dosage: 40 MG, HS
     Route: 048
  8. NYSTATIN. [Concomitant]
     Active Substance: NYSTATIN
     Dosage: 1 APPLICATION, BID
     Route: 061
  9. PEMBROLIZUMAB. [Suspect]
     Active Substance: PEMBROLIZUMAB
     Indication: METASTATIC MALIGNANT MELANOMA
     Dosage: STRENGTH AND DOSE: 2 MG/KG, Q3W
     Route: 042
     Dates: start: 20140609
  10. GABAPENTIN. [Concomitant]
     Active Substance: GABAPENTIN
     Dosage: AS DIRECTED
     Route: 048
  11. LEVOTHYROXINE SODIUM. [Concomitant]
     Active Substance: LEVOTHYROXINE SODIUM
     Dosage: 88 MICROGRAM, QD
     Route: 048
  12. FLOMAX [Concomitant]
     Active Substance: TAMSULOSIN HYDROCHLORIDE
     Dosage: 0.4 MG, QD
     Route: 048
  13. OXYCODONE [Concomitant]
     Active Substance: OXYCODONE
     Indication: PAIN
     Dosage: TAKE 1.5-2.0 TABLET Q3H PRN
     Route: 048
  14. SOLU-CORTEF [Concomitant]
     Active Substance: HYDROCORTISONE SODIUM SUCCINATE
     Indication: MALAISE
     Dosage: 100 MG, VIAL,  Q8H, PRN
     Route: 030
  15. HYDROCORTONE [Concomitant]
     Active Substance: HYDROCORTISONE
     Dosage: 10 MG, AS DIRECTED
     Route: 048
  16. BACTRIM [Concomitant]
     Active Substance: SULFAMETHOXAZOLE\TRIMETHOPRIM
     Dosage: 80-400 MG TABLET, TAKE 1, QD
     Route: 048
  17. EMLA [Concomitant]
     Active Substance: LIDOCAINE\PRILOCAINE
     Dosage: 1 APPLICATION, UNK
     Route: 061
  18. ASPIRIN. [Concomitant]
     Active Substance: ASPIRIN
     Dosage: 325 MG, QD
     Route: 048

REACTIONS (10)
  - Pyrexia [Unknown]
  - Diarrhoea [Unknown]
  - Diarrhoea [Unknown]
  - Vomiting [Unknown]
  - Nausea [Unknown]
  - Colitis [Unknown]
  - Nausea [Unknown]
  - Diarrhoea [Recovering/Resolving]
  - Pyrexia [Unknown]
  - Vomiting [Unknown]

NARRATIVE: CASE EVENT DATE: 20140828
